FAERS Safety Report 8965060 (Version 1)
Quarter: 2012Q4

REPORT INFORMATION
  Report Type: 
  Country: US (occurrence: US)
  Receive Date: 20121213
  Receipt Date: 20121213
  Transmission Date: 20130627
  Serious: Yes (Other)
  Sender: FDA-Public Use
  Company Number: US-BRISTOL-MYERS SQUIBB COMPANY-16388183

PATIENT
  Age: 66 Year
  Sex: Female
  Weight: 134 kg

DRUGS (13)
  1. PRAVACHOL [Suspect]
     Indication: BLOOD CHOLESTEROL INCREASED
  2. LIPITOR [Suspect]
     Indication: BLOOD CHOLESTEROL INCREASED
     Dosage: tabs
     Route: 048
  3. XANAX [Concomitant]
     Indication: ANXIETY
  4. VITAMIN D [Concomitant]
  5. CALCIUM [Concomitant]
  6. VITAMIN E [Concomitant]
  7. VITAMIN C [Concomitant]
  8. FISH OIL [Concomitant]
  9. COENZYME-Q10 [Concomitant]
  10. NORVASC [Concomitant]
     Indication: HYPERTENSION
  11. ALTACE [Concomitant]
     Indication: HYPERTENSION
  12. ASPIRIN [Concomitant]
     Indication: HYPERTENSION
  13. ALDACTAZIDE [Concomitant]
     Indication: HYPERTENSION
     Dosage: 1df=25/25 mg

REACTIONS (3)
  - Angina pectoris [Unknown]
  - Adrenal disorder [Unknown]
  - Myalgia [Unknown]
